FAERS Safety Report 7197638-8 (Version None)
Quarter: 2010Q4

REPORT INFORMATION
  Report Type: 
  Country: None (occurrence: None)
  Receive Date: 20101207
  Receipt Date: 20101202
  Transmission Date: 20110411
  Serious: Yes (Other)
  Sender: FDA-Public Use
  Company Number: A0897439A

PATIENT
  Age: 50 Year
  Sex: Female

DRUGS (1)
  1. ASPIRIN + CAFFEINE + PARACETAMOL (FORMULATION UNKNOWN) (ACETAMINOPHEN [Suspect]
     Dosage: ORAL
     Route: 048

REACTIONS (3)
  - DEPENDENCE [None]
  - INCORRECT DOSE ADMINISTERED [None]
  - SOMNOLENCE [None]
